FAERS Safety Report 7715798-4 (Version None)
Quarter: 2011Q3

REPORT INFORMATION
  Report Type: 
  Country: None (occurrence: None)
  Receive Date: 20110829
  Receipt Date: 20110829
  Transmission Date: 20111222
  Serious: Yes (Other)
  Sender: FDA-Public Use
  Company Number: None

PATIENT
  Age: 35 Year
  Sex: Female
  Weight: 99.79 kg

DRUGS (3)
  1. LATUDA [Suspect]
     Indication: BIPOLAR DISORDER
     Dosage: 40-80 MGS
     Route: 048
     Dates: start: 20110801, end: 20110825
  2. LATUDA [Suspect]
     Indication: ANXIETY
     Dosage: 40-80 MGS
     Route: 048
     Dates: start: 20110801, end: 20110825
  3. LATUDA [Suspect]
     Indication: DEPRESSION
     Dosage: 40-80 MGS
     Route: 048
     Dates: start: 20110801, end: 20110825

REACTIONS (9)
  - RASH ERYTHEMATOUS [None]
  - PRURITUS [None]
  - SCRATCH [None]
  - NO THERAPEUTIC RESPONSE [None]
  - HAEMORRHAGE [None]
  - THERAPY REGIMEN CHANGED [None]
  - SKIN DISCOLOURATION [None]
  - URTICARIA [None]
  - FEELING ABNORMAL [None]
